FAERS Safety Report 4506883-9 (Version None)
Quarter: 2004Q4

REPORT INFORMATION
  Report Type: 
  Country: None (occurrence: None)
  Receive Date: 20041117
  Receipt Date: 20041104
  Transmission Date: 20050328
  Serious: Yes (Other)
  Sender: FDA-Public Use
  Company Number: 2004086855

PATIENT
  Age: 62 Year
  Sex: Female

DRUGS (8)
  1. NORVASC [Suspect]
     Indication: HYPERTENSION
     Dosage: 5 MG (5 MG, 1 IN 1 D), ORAL
     Route: 048
     Dates: start: 20040501
  2. LISINOPRIL [Concomitant]
  3. HYDROCHLOROTHIAZIDE (HYDROCLOROTHIAZIDE) [Concomitant]
  4. OMEPRAZOLE [Concomitant]
  5. CYCLOBENZAPRINE HYDROCHLORIDE [Concomitant]
  6. LEVOTHYROXINE SODIUM [Concomitant]
  7. SIMVASTATIN [Concomitant]
  8. VICODIN [Concomitant]

REACTIONS (13)
  - BLOOD PRESSURE SYSTOLIC INCREASED [None]
  - BURNING SENSATION [None]
  - DRUG EFFECT DECREASED [None]
  - DRY MOUTH [None]
  - FLUID RETENTION [None]
  - INSOMNIA [None]
  - MUSCLE CRAMP [None]
  - NASOPHARYNGITIS [None]
  - OEDEMA PERIPHERAL [None]
  - ORAL SURGERY [None]
  - PAIN IN EXTREMITY [None]
  - PHARMACEUTICAL PRODUCT COMPLAINT [None]
  - VISUAL ACUITY REDUCED [None]
